FAERS Safety Report 7455081-8 (Version None)
Quarter: 2011Q2

REPORT INFORMATION
  Report Type: 
  Country: None (occurrence: None)
  Receive Date: 20110503
  Receipt Date: 20110502
  Transmission Date: 20111010
  Serious: Yes (Hospitalization, Other)
  Sender: FDA-Public Use
  Company Number: US-PFIZER INC-2011094000

PATIENT
  Sex: Male
  Weight: 136 kg

DRUGS (1)
  1. LYRICA [Suspect]
     Indication: DIABETIC NEUROPATHY
     Dosage: 100 MG, 2 OR 3 TIMES A DAY
     Route: 048
     Dates: start: 20100101, end: 20110501

REACTIONS (7)
  - EMPHYSEMA [None]
  - RESTLESSNESS [None]
  - SWELLING [None]
  - HALLUCINATION [None]
  - SLEEP DISORDER [None]
  - URINARY TRACT INFECTION [None]
  - CONFUSIONAL STATE [None]
